FAERS Safety Report 18416483 (Version 2)
Quarter: 2020Q4

REPORT INFORMATION
  Report Type: Report from Study
  Country: CA (occurrence: CA)
  Receive Date: 20201022
  Receipt Date: 20201113
  Transmission Date: 20210114
  Serious: Yes (Death, Other)
  Sender: FDA-Public Use
  Company Number: CA-ASTRAZENECA-2020SF36832

PATIENT
  Sex: Female

DRUGS (1)
  1. FASLODEX [Suspect]
     Active Substance: FULVESTRANT
     Indication: BREAST CANCER METASTATIC
     Dosage: UNKNOWN DOSE AND FREQUENCY
     Route: 030
     Dates: start: 20171011, end: 20200211

REACTIONS (3)
  - Malignant neoplasm progression [Fatal]
  - Metastases to bone [Unknown]
  - Ascites [Fatal]
